FAERS Safety Report 6741374-6 (Version None)
Quarter: 2010Q2

REPORT INFORMATION
  Report Type: 
  Country: None (occurrence: None)
  Receive Date: 20100526
  Receipt Date: 20100218
  Transmission Date: 20101027
  Serious: Yes (Hospitalization)
  Sender: FDA-Public Use
  Company Number: PHHY2010DK09964

PATIENT
  Sex: Male
  Weight: 78 kg

DRUGS (4)
  1. TEGRETOL [Suspect]
     Indication: MANIA
     Route: 048
     Dates: start: 20100117
  2. ERYTHROMYCIN [Concomitant]
     Indication: SALIVARY GLAND ENLARGEMENT
  3. ABILIFY [Concomitant]
     Route: 048
  4. NOZINAN [Concomitant]
     Route: 048

REACTIONS (2)
  - GAIT DISTURBANCE [None]
  - INSOMNIA [None]
